FAERS Safety Report 5451600-1 (Version None)
Quarter: 2007Q3

REPORT INFORMATION
  Report Type: 
  Country: None (occurrence: None)
  Receive Date: 20070913
  Receipt Date: 20070910
  Transmission Date: 20080115
  Serious: Yes (Other)
  Sender: FDA-Public Use
  Company Number: JP-BOEHRINGER INGELHEIM PHARMACEUTICALS, INC.-2007-BP-20915NB

PATIENT
  Sex: Female
  Weight: 53 kg

DRUGS (5)
  1. BI-SIFROL TABLETS [Suspect]
     Indication: PARKINSON'S DISEASE
     Route: 048
     Dates: start: 20060217
  2. MENESIT [Concomitant]
     Indication: PARKINSON'S DISEASE
     Route: 048
     Dates: start: 20060119
  3. NAUZELIN [Concomitant]
     Indication: ADVERSE EVENT
     Route: 048
     Dates: start: 20060217
  4. TENORMIN [Concomitant]
     Indication: HYPERTENSION
     Route: 048
     Dates: start: 20060217
  5. LORAZEPAM [Concomitant]
     Indication: MENTAL DISORDER
     Route: 048
     Dates: start: 20070613

REACTIONS (1)
  - NEUROLEPTIC MALIGNANT SYNDROME [None]
